FAERS Safety Report 9774484 (Version 3)
Quarter: 2014Q2

REPORT INFORMATION
  Report Type: Spontaneous
  Country: JP (occurrence: JP)
  Receive Date: 20131220
  Receipt Date: 20140606
  Transmission Date: 20141212
  Serious: Yes (Hospitalization, Other)
  Sender: FDA-Public Use
  Company Number: JP-BAXTER-2013BAX042477

PATIENT
  Age: 67 Year
  Sex: Male
  Weight: 61 kg

DRUGS (17)
  1. ADVATE 2000 [Suspect]
     Indication: GASTROINTESTINAL HAEMORRHAGE
     Route: 042
     Dates: start: 20130924, end: 20130924
  2. ADVATE 2000 [Suspect]
     Route: 042
     Dates: start: 20131025, end: 20131025
  3. ADVATE 1000 [Suspect]
     Indication: GASTROINTESTINAL HAEMORRHAGE
     Route: 042
     Dates: start: 20130924, end: 20130924
  4. ADVATE 1000 [Suspect]
     Route: 042
     Dates: start: 20130925, end: 20130929
  5. ADVATE 1000 [Suspect]
     Route: 042
     Dates: start: 20130930, end: 20131008
  6. ADVATE 1000 [Suspect]
     Route: 042
     Dates: start: 20131025, end: 20131025
  7. ADVATE 500 [Suspect]
     Indication: GASTROINTESTINAL HAEMORRHAGE
     Route: 042
     Dates: start: 20130925, end: 20130929
  8. ADVATE 500 [Suspect]
     Route: 042
     Dates: start: 20130930, end: 20131008
  9. HUMAN RED BLOOD CELLS [Concomitant]
     Indication: PRODUCT USED FOR UNKNOWN INDICATION
     Dosage: 2 UNITS
     Route: 042
     Dates: start: 20131025, end: 20131026
  10. NEXIUM [Concomitant]
     Indication: GASTRIC ULCER HAEMORRHAGE
     Route: 048
     Dates: start: 20130923
  11. ALLOID G [Concomitant]
     Indication: GASTRIC ULCER HAEMORRHAGE
     Route: 048
     Dates: start: 20130923, end: 20131023
  12. MAGNESIUM OXIDE [Concomitant]
     Indication: PRODUCT USED FOR UNKNOWN INDICATION
     Route: 048
     Dates: start: 20131003, end: 20131023
  13. AMOBAN [Concomitant]
     Indication: PRODUCT USED FOR UNKNOWN INDICATION
     Route: 048
     Dates: start: 20130923, end: 20131015
  14. THROMBIN [Concomitant]
     Indication: PRODUCT USED FOR UNKNOWN INDICATION
     Route: 048
     Dates: start: 20130924, end: 20131003
  15. FESIN [Concomitant]
     Indication: PRODUCT USED FOR UNKNOWN INDICATION
     Dosage: 1 A
     Route: 042
     Dates: start: 20130924, end: 20131007
  16. FEIBA [Concomitant]
     Indication: HAEMOSTASIS
     Route: 042
  17. NOVOSEVEN [Concomitant]
     Indication: HAEMOSTASIS
     Route: 042

REACTIONS (3)
  - Factor VIII inhibition [Not Recovered/Not Resolved]
  - Haematoma [Unknown]
  - Muscle haemorrhage [Unknown]
